FAERS Safety Report 7283332-1 (Version None)
Quarter: 2011Q1

REPORT INFORMATION
  Report Type: 
  Country: None (occurrence: None)
  Receive Date: 20110125
  Receipt Date: 20110112
  Transmission Date: 20110831
  Serious: Yes (Hospitalization)
  Sender: FDA-Public Use
  Company Number: 023756

PATIENT
  Sex: Female
  Weight: 59 kg

DRUGS (7)
  1. ZOFRAN [Concomitant]
  2. CIPRO [Concomitant]
  3. LEXAPRO [Concomitant]
  4. HYDROMORPHONE HYDROCHLORIDE [Concomitant]
  5. MORPHINE [Concomitant]
  6. CIMZIA [Suspect]
     Indication: CROHN'S DISEASE
     Dosage: (400 MG 1X/MONTH SUBCUTANEOUS)
     Route: 058
     Dates: start: 20101028
  7. FLAGYL [Concomitant]

REACTIONS (3)
  - CONDITION AGGRAVATED [None]
  - CROHN'S DISEASE [None]
  - MALNUTRITION [None]
